FAERS Safety Report 6981050-8 (Version None)
Quarter: 2010Q3

REPORT INFORMATION
  Report Type: 
  Country: None (occurrence: None)
  Receive Date: 20100914
  Receipt Date: 20100909
  Transmission Date: 20110219
  Serious: Yes (Hospitalization, Other)
  Sender: FDA-Public Use
  Company Number: BR-BAYER-201010499LA

PATIENT
  Age: 23 Year
  Sex: Female

DRUGS (1)
  1. YASMIN [Suspect]
     Indication: CONTRACEPTION
     Dosage: 6 OR 7 DAYS OF PILL FREE INTERVAL
     Route: 048
     Dates: start: 20070101, end: 20090701

REACTIONS (5)
  - DIZZINESS [None]
  - METRORRHAGIA [None]
  - PREGNANCY ON ORAL CONTRACEPTIVE [None]
  - SYNCOPE [None]
  - URINARY TRACT INFECTION [None]
